FAERS Safety Report 6902022-5 (Version None)
Quarter: 2010Q3

REPORT INFORMATION
  Report Type: 
  Country: None (occurrence: None)
  Receive Date: 20100803
  Receipt Date: 20080414
  Transmission Date: 20110219
  Serious: No
  Sender: FDA-Public Use
  Company Number: US-PFIZER INC-2008018622

PATIENT
  Sex: Female
  Weight: 65.9 kg

DRUGS (6)
  1. LYRICA [Suspect]
     Indication: FIBROMYALGIA
     Dates: start: 20071201
  2. TRAMADOL HYDROCHLORIDE [Concomitant]
  3. FLEXERIL [Concomitant]
  4. ZOLPIDEM TARTRATE [Concomitant]
  5. TYLENOL [Concomitant]
  6. PROTONIX [Concomitant]

REACTIONS (2)
  - DRUG INEFFECTIVE [None]
  - TRIGGER FINGER [None]
